FAERS Safety Report 18415975 (Version 3)
Quarter: 2020Q4

REPORT INFORMATION
  Report Type: Report from Study
  Country: US (occurrence: US)
  Receive Date: 20201022
  Receipt Date: 20201026
  Transmission Date: 20210114
  Serious: Yes (Hospitalization)
  Sender: FDA-Public Use
  Company Number: US-PFIZER INC-2020406150

PATIENT
  Age: 47 Year
  Sex: Male
  Weight: 99.96 kg

DRUGS (6)
  1. BLINDED BNT162B1 [Suspect]
     Active Substance: INVESTIGATIONAL PRODUCT
     Indication: IMMUNISATION
     Dosage: SINGLE DOSE
     Route: 030
     Dates: start: 20200909, end: 20200909
  2. BLINDED BNT162B2 [Suspect]
     Active Substance: INVESTIGATIONAL PRODUCT
     Indication: IMMUNISATION
     Dosage: SINGLE DOSE
     Route: 030
     Dates: start: 20200909, end: 20200909
  3. AMLODIPINE BESILATE [Suspect]
     Active Substance: AMLODIPINE BESYLATE
     Indication: HYPERTENSION
     Dosage: 5 MG
     Route: 048
     Dates: start: 2019
  4. BLINDED BNT162C2 [Suspect]
     Active Substance: INVESTIGATIONAL PRODUCT
     Indication: IMMUNISATION
     Dosage: SINGLE DOSE
     Route: 030
     Dates: start: 20200909, end: 20200909
  5. BLINDED BNT162A1 [Suspect]
     Active Substance: INVESTIGATIONAL PRODUCT
     Indication: IMMUNISATION
     Dosage: SINGLE DOSE
     Route: 030
     Dates: start: 20200909, end: 20200909
  6. PLACEBO [Suspect]
     Active Substance: UNSPECIFIED INGREDIENT
     Indication: IMMUNISATION
     Dosage: SINGLE DOSE
     Route: 030
     Dates: start: 20200909, end: 20200909

REACTIONS (1)
  - Hypokalaemia [Recovered/Resolved]

NARRATIVE: CASE EVENT DATE: 202009
